FAERS Safety Report 21034081 (Version 1)
Quarter: 2022Q3

REPORT INFORMATION
  Report Type: Spontaneous
  Country: US (occurrence: None)
  Receive Date: 20220701
  Receipt Date: 20220701
  Transmission Date: 20221027
  Serious: Yes (Other)
  Sender: FDA-Public Use
  Company Number: None

PATIENT
  Age: 29 Year
  Sex: Female
  Weight: 62.1 kg

DRUGS (8)
  1. XOLAIR [Suspect]
     Active Substance: OMALIZUMAB
     Indication: Urticaria
     Dosage: OTHER QUANTITY : 2 INJECTION(S);?OTHER FREQUENCY : 1X EVERY 4 WEEKS;?
     Route: 055
     Dates: start: 20220523
  2. Postnatal Vitamin [Concomitant]
  3. Probiotic gummy [Concomitant]
  4. Hydroxyzine 3x a day as needed (10 -25 mg ) [Concomitant]
  5. SERTRALINE [Concomitant]
     Active Substance: SERTRALINE HYDROCHLORIDE
  6. FAMOTIDINE [Concomitant]
     Active Substance: FAMOTIDINE
  7. ZYRTEC [Concomitant]
     Active Substance: CETIRIZINE HYDROCHLORIDE
  8. Clairton [Concomitant]

REACTIONS (3)
  - Urticaria [None]
  - Condition aggravated [None]
  - Swelling face [None]

NARRATIVE: CASE EVENT DATE: 20220630
